FAERS Safety Report 17117398 (Version 1)
Quarter: 2019Q4

REPORT INFORMATION
  Report Type: Report from Study
  Country: US (occurrence: US)
  Receive Date: 20191205
  Receipt Date: 20191205
  Transmission Date: 20200122
  Serious: Yes (Death)
  Sender: FDA-Public Use
  Company Number: US-ACTELION-A-NJ2018-178407

PATIENT
  Age: 69 Year
  Sex: Female

DRUGS (4)
  1. UPTRAVI [Suspect]
     Active Substance: SELEXIPAG
     Dosage: 200 MCG, BID
     Route: 048
     Dates: start: 20170919
  2. UPTRAVI [Suspect]
     Active Substance: SELEXIPAG
     Dosage: 800 MCG, BID
     Route: 048
     Dates: start: 20170919
  3. UPTRAVI [Suspect]
     Active Substance: SELEXIPAG
     Indication: PULMONARY ARTERIAL HYPERTENSION
     Dosage: 1000 MCG, BID
     Route: 048
     Dates: start: 20170919, end: 20191103
  4. HUMIRA [Concomitant]
     Active Substance: ADALIMUMAB

REACTIONS (6)
  - Lung disorder [Fatal]
  - Oxygen consumption increased [Unknown]
  - Oxygen saturation decreased [Unknown]
  - Dizziness [Unknown]
  - Pneumonia [Fatal]
  - Skin discolouration [Unknown]

NARRATIVE: CASE EVENT DATE: 20180801
